FAERS Safety Report 20389405 (Version 1)
Quarter: 2022Q1

REPORT INFORMATION
  Report Type: Spontaneous
  Country: LB (occurrence: LB)
  Receive Date: 20220128
  Receipt Date: 20220128
  Transmission Date: 20220423
  Serious: Yes (Death, Hospitalization, Other)
  Sender: FDA-Public Use
  Company Number: LB-LUPIN PHARMACEUTICALS INC.-2022-01058

PATIENT
  Age: 34 Year
  Sex: Male

DRUGS (10)
  1. LEVOFLOXACIN [Suspect]
     Active Substance: LEVOFLOXACIN
     Indication: Pneumonia bacterial
     Dosage: UNK
     Route: 065
  2. SULFAMETHOXAZOLE AND TRIMETHOPRIM [Suspect]
     Active Substance: SULFAMETHOXAZOLE\TRIMETHOPRIM
     Indication: Stenotrophomonas infection
     Dosage: UNK
     Route: 065
  3. IMIPENEM [Suspect]
     Active Substance: IMIPENEM
     Indication: Pneumonia bacterial
     Dosage: UNK
     Route: 065
  4. MEROPENEM [Suspect]
     Active Substance: MEROPENEM
     Indication: Pneumonia bacterial
     Dosage: UNK
     Route: 065
  5. AMIKACIN [Suspect]
     Active Substance: AMIKACIN
     Indication: Enterobacter infection
     Dosage: UNK
     Route: 065
  6. TIGECYCLINE [Suspect]
     Active Substance: TIGECYCLINE
     Indication: Enterobacter infection
     Dosage: UNK
     Route: 065
  7. TIGECYCLINE [Suspect]
     Active Substance: TIGECYCLINE
     Dosage: UNK, INHALATION
     Route: 055
  8. COLISTIN [Suspect]
     Active Substance: COLISTIN
     Indication: Antibiotic therapy
     Dosage: UNK
     Route: 055
  9. FLUCONAZOLE [Concomitant]
     Active Substance: FLUCONAZOLE
     Indication: Candida infection
     Dosage: UNK
     Route: 042
  10. CASPOFUNGIN [Concomitant]
     Active Substance: CASPOFUNGIN
     Indication: Candida infection
     Dosage: UNK
     Route: 065

REACTIONS (6)
  - Superinfection bacterial [Fatal]
  - Superinfection fungal [Fatal]
  - Pneumothorax [Fatal]
  - Respiratory failure [Fatal]
  - Cardiac arrest [Fatal]
  - Inflammatory marker increased [Unknown]
